FAERS Safety Report 16077880 (Version 4)
Quarter: 2019Q2

REPORT INFORMATION
  Report Type: Report from Study
  Country: DE (occurrence: DE)
  Receive Date: 20190315
  Receipt Date: 20190416
  Transmission Date: 20190711
  Serious: Yes (Death, Hospitalization)
  Sender: FDA-Public Use
  Company Number: DE-JNJFOC-20190314290

PATIENT
  Age: 39 Year
  Sex: Female
  Weight: 79 kg

DRUGS (3)
  1. TRABECTEDIN [Suspect]
     Active Substance: TRABECTEDIN
     Indication: NEOPLASM
     Dosage: SUSPECTED CYCLE 1
     Route: 042
     Dates: start: 20190226, end: 20190226
  2. TRABECTEDIN [Suspect]
     Active Substance: TRABECTEDIN
     Route: 042
  3. OLAPARIB. [Suspect]
     Active Substance: OLAPARIB
     Indication: NEOPLASM
     Route: 048
     Dates: start: 20190226, end: 20190306

REACTIONS (4)
  - Tissue injury [Recovered/Resolved]
  - Extravasation [Recovered/Resolved]
  - Pulmonary embolism [Not Recovered/Not Resolved]
  - Neoplasm progression [Fatal]

NARRATIVE: CASE EVENT DATE: 20190306
